FAERS Safety Report 11962217 (Version 2)
Quarter: 2016Q1

REPORT INFORMATION
  Report Type: Spontaneous
  Country: CA (occurrence: CA)
  Receive Date: 20160126
  Receipt Date: 20160126
  Transmission Date: 20160526
  Serious: Yes (Other)
  Sender: FDA-Public Use
  Company Number: CA-ACTAVIS-2016-01512

PATIENT
  Age: 24 Year
  Sex: Female

DRUGS (5)
  1. ARIPIPRAZOLE (UNKNOWN) [Suspect]
     Active Substance: ARIPIPRAZOLE
     Indication: SCHIZOAFFECTIVE DISORDER
     Dosage: UNK
     Route: 065
  2. RISPERIDONE (UNKNOWN) [Suspect]
     Active Substance: RISPERIDONE
     Indication: SCHIZOAFFECTIVE DISORDER
     Dosage: UNK
     Route: 030
  3. QUETIAPINE (UNKNOWN) [Suspect]
     Active Substance: QUETIAPINE
     Indication: SCHIZOAFFECTIVE DISORDER
     Dosage: 200 MG, DAILY
     Route: 065
  4. RISPERIDONE (UNKNOWN) [Suspect]
     Active Substance: RISPERIDONE
     Dosage: 0.5 MG, DAILY
     Route: 048
  5. RISPERIDONE (UNKNOWN) [Suspect]
     Active Substance: RISPERIDONE
     Dosage: 1.5 MG, DAILY
     Route: 065

REACTIONS (2)
  - Oculogyric crisis [Recovered/Resolved]
  - Drug intolerance [Unknown]
